FAERS Safety Report 11191631 (Version 2)
Quarter: 2015Q3

REPORT INFORMATION
  Report Type: Spontaneous
  Country: GB (occurrence: GB)
  Receive Date: 20150616
  Receipt Date: 20150713
  Transmission Date: 20151125
  Serious: Yes (Hospitalization, Other)
  Sender: FDA-Public Use
  Company Number: GB-009507513-1506GBR007113

PATIENT
  Age: 3 Day
  Sex: Male
  Weight: 3.4 kg

DRUGS (1)
  1. ESMERON [Suspect]
     Active Substance: ROCURONIUM BROMIDE
     Indication: MUSCLE RELAXANT THERAPY
     Dosage: STRENGTH: 10 MG/ML; 0.8 MG/KG/HR
     Route: 042

REACTIONS (1)
  - Neurotoxicity [Recovered/Resolved]
